FAERS Safety Report 14404257 (Version 1)
Quarter: 2018Q1

REPORT INFORMATION
  Report Type: Spontaneous
  Country: US (occurrence: US)
  Receive Date: 20180117
  Receipt Date: 20180117
  Transmission Date: 20180509
  Serious: Yes (Hospitalization)
  Sender: FDA-Public Use
  Company Number: US-DSJP-DSU-2017-138548

PATIENT

DRUGS (1)
  1. BENICAR [Suspect]
     Active Substance: OLMESARTAN MEDOXOMIL
     Indication: PRODUCT USED FOR UNKNOWN INDICATION
     Dosage: 20 MG, QD
     Route: 048
     Dates: start: 20100101, end: 20170615

REACTIONS (6)
  - Gastroenteritis viral [Unknown]
  - Large intestine polyp [Not Recovered/Not Resolved]
  - Sprue-like enteropathy [Not Recovered/Not Resolved]
  - Haemorrhoids [Unknown]
  - Constipation [Unknown]
  - Diverticulum [Unknown]

NARRATIVE: CASE EVENT DATE: 20130425
